FAERS Safety Report 12626275 (Version 1)
Quarter: 2016Q3

REPORT INFORMATION
  Report Type: Spontaneous
  Country: CA (occurrence: CA)
  Receive Date: 20160805
  Receipt Date: 20160805
  Transmission Date: 20161109
  Serious: Yes (Other)
  Sender: FDA-Public Use
  Company Number: CA-HQ SPECIALTY-CA-2016INT000499

PATIENT
  Age: 52 Year
  Sex: Female

DRUGS (3)
  1. FOLIC ACID. [Suspect]
     Active Substance: FOLIC ACID
     Indication: PRODUCT USED FOR UNKNOWN INDICATION
     Dosage: 5 MG, DAILY, 6 DAYS A WEEK EXCEPT METHOTREXATE DAY
     Route: 048
     Dates: end: 201602
  2. ARAVA [Suspect]
     Active Substance: LEFLUNOMIDE
     Indication: PRODUCT USED FOR UNKNOWN INDICATION
     Dosage: (20 MG, 1 D)
     Route: 048
     Dates: start: 2007
  3. METHOTREXATE SODIUM. [Suspect]
     Active Substance: METHOTREXATE SODIUM
     Indication: RHEUMATOID ARTHRITIS
     Dosage: 3.571 MG, (25 MG, 1 IN 1 W)
     Route: 048
     Dates: start: 2007, end: 201602

REACTIONS (2)
  - Sensitivity to weather change [Unknown]
  - Hepatic fibrosis [Unknown]
